FAERS Safety Report 14859397 (Version 1)
Quarter: 2018Q2

REPORT INFORMATION
  Report Type: Spontaneous
  Country: CN (occurrence: CN)
  Receive Date: 20180508
  Receipt Date: 20180508
  Transmission Date: 20180711
  Serious: Yes (Other)
  Sender: FDA-Public Use
  Company Number: CN-ROCHE-2118469

PATIENT
  Sex: Female
  Weight: 65 kg

DRUGS (3)
  1. TAMOXIFEN [Concomitant]
     Active Substance: TAMOXIFEN
  2. PACLITAXEL. [Concomitant]
     Active Substance: PACLITAXEL
     Indication: BREAST CANCER
     Dosage: ON DAY 1 IN A CYCLE
     Route: 041
     Dates: start: 20171116
  3. XELODA [Suspect]
     Active Substance: CAPECITABINE
     Indication: BREAST CANCER
     Dosage: FROM DAY1 TO DAY 14 IN A CYCLE
     Route: 048
     Dates: start: 20171116

REACTIONS (2)
  - Nail disorder [Not Recovered/Not Resolved]
  - Nail pigmentation [Not Recovered/Not Resolved]
